FAERS Safety Report 6261365-1 (Version None)
Quarter: 2009Q3

REPORT INFORMATION
  Report Type: 
  Country: None (occurrence: None)
  Receive Date: 20090709
  Receipt Date: 20090626
  Transmission Date: 20100115
  Serious: Yes (Other)
  Sender: FDA-Public Use
  Company Number: GB-PFIZER INC-2009232541

PATIENT
  Age: 73 Year

DRUGS (9)
  1. CHAMPIX [Suspect]
     Indication: SMOKING CESSATION THERAPY
     Dosage: 0.5 MG, UNK
     Route: 048
     Dates: start: 20080930, end: 20081007
  2. ACETYLSALICYLIC ACID [Concomitant]
  3. DILTIAZEM [Concomitant]
  4. FRUSEMIDE [Concomitant]
  5. ISOSORBIDE [Concomitant]
  6. LEVOTHYROXINE [Concomitant]
  7. PREDNISOLONE [Concomitant]
  8. TIOTROPIUM BROMIDE [Concomitant]
  9. TOLTERODINE TARTRATE [Concomitant]

REACTIONS (2)
  - DEPRESSION [None]
  - INTENTIONAL OVERDOSE [None]
